FAERS Safety Report 21963920 (Version 1)
Quarter: 2023Q1

REPORT INFORMATION
  Report Type: Spontaneous
  Country: CN (occurrence: CN)
  Receive Date: 20230207
  Receipt Date: 20230207
  Transmission Date: 20230418
  Serious: Yes (Disabling)
  Sender: FDA-Public Use
  Company Number: CN-PFIZER INC-PV202300022157

PATIENT
  Age: 21 Year
  Sex: Male
  Weight: 70 kg

DRUGS (8)
  1. METHOTREXATE SODIUM [Suspect]
     Active Substance: METHOTREXATE SODIUM
     Indication: Chemotherapy
     Dosage: 1.8 G, 1X/DAY
     Route: 041
     Dates: start: 20230120, end: 20230120
  2. METHOTREXATE SODIUM [Suspect]
     Active Substance: METHOTREXATE SODIUM
     Indication: T-cell type acute leukaemia
  3. IFOSFAMIDE [Concomitant]
     Active Substance: IFOSFAMIDE
     Indication: Chemotherapy
     Dosage: 1.8 G, 1X/DAY
     Route: 041
     Dates: start: 20230120, end: 20230124
  4. IFOSFAMIDE [Concomitant]
     Active Substance: IFOSFAMIDE
     Indication: T-cell type acute leukaemia
  5. IDARUBICIN [Concomitant]
     Active Substance: IDARUBICIN
     Indication: Chemotherapy
     Dosage: 10 MG, 1X/DAY
     Route: 041
     Dates: start: 20230120, end: 20230122
  6. IDARUBICIN [Concomitant]
     Active Substance: IDARUBICIN
     Indication: T-cell type acute leukaemia
  7. VENETOCLAX [Concomitant]
     Active Substance: VENETOCLAX
     Indication: Chemotherapy
     Dosage: 100 MG, 1X/DAY
     Route: 048
     Dates: start: 20230120, end: 20230124
  8. VENETOCLAX [Concomitant]
     Active Substance: VENETOCLAX
     Indication: T-cell type acute leukaemia

REACTIONS (4)
  - Stomatitis [Recovering/Resolving]
  - Oropharyngeal pain [Recovering/Resolving]
  - Feeding disorder [Recovering/Resolving]
  - Odynophagia [Recovering/Resolving]

NARRATIVE: CASE EVENT DATE: 20230127
